FAERS Safety Report 5333234-2 (Version None)
Quarter: 2007Q2

REPORT INFORMATION
  Report Type: 
  Country: None (occurrence: None)
  Receive Date: 20070524
  Receipt Date: 20070516
  Transmission Date: 20071010
  Serious: Yes (Other)
  Sender: FDA-Public Use
  Company Number: PHBS2007BR08164

PATIENT
  Age: 31 Year
  Sex: Male
  Weight: 115 kg

DRUGS (3)
  1. DIOVAN HCT [Suspect]
     Indication: HYPERTENSION
     Dosage: VALS 80 / HCT 12.5 MG/DAY
     Route: 048
     Dates: start: 20061201
  2. DIOVAN HCT [Suspect]
     Dosage: 1.5 TABLET,PRN
     Route: 048
  3. DIOVAN HCT [Suspect]
     Dosage: VALS 160 / HCT 12.5 MG
     Route: 048
     Dates: start: 20070515

REACTIONS (8)
  - BLOOD PRESSURE FLUCTUATION [None]
  - BLOOD PRESSURE INCREASED [None]
  - DIZZINESS [None]
  - DRUG INEFFECTIVE [None]
  - FEELING HOT [None]
  - HEADACHE [None]
  - MALAISE [None]
  - PALLOR [None]
